FAERS Safety Report 25646071 (Version 2)
Quarter: 2025Q3

REPORT INFORMATION
  Report Type: Spontaneous
  Country: EU (occurrence: EU)
  Receive Date: 20250805
  Receipt Date: 20250811
  Transmission Date: 20251020
  Serious: Yes (Other)
  Sender: BAUSCH AND LOMB
  Company Number: EU-BAUSCH-BH-2025-015764

PATIENT
  Age: 44 Year
  Sex: Male

DRUGS (2)
  1. BUDESONIDE [Suspect]
     Active Substance: BUDESONIDE
     Indication: Eosinophilic oesophagitis
     Dosage: 1 MILLIGRAM, BID
     Route: 048
     Dates: start: 20240430, end: 20241021
  2. BUDESONIDE [Suspect]
     Active Substance: BUDESONIDE
     Dosage: 1 MILLIGRAM, BID FOR 12 WEEKS
     Route: 048
     Dates: start: 20240130, end: 20240430

REACTIONS (2)
  - Central serous chorioretinopathy [Not Recovered/Not Resolved]
  - Visual acuity reduced [Not Recovered/Not Resolved]

NARRATIVE: CASE EVENT DATE: 20241001
